FAERS Safety Report 5807920-1 (Version None)
Quarter: 2008Q3

REPORT INFORMATION
  Report Type: 
  Country: None (occurrence: None)
  Receive Date: 20080711
  Receipt Date: 20080703
  Transmission Date: 20090109
  Serious: Yes (Other)
  Sender: FDA-Public Use
  Company Number: GB-ABBOTT-08P-167-0461236-00

PATIENT
  Age: 45 Year
  Sex: Female

DRUGS (2)
  1. ERYTHROMYCIN BASE [Suspect]
     Indication: ECZEMA INFECTED
     Route: 048
     Dates: start: 20080612, end: 20080618
  2. TRANEXAMIC ACID [Concomitant]
     Indication: MENORRHAGIA

REACTIONS (2)
  - PHOTOSENSITIVITY REACTION [None]
  - RASH ERYTHEMATOUS [None]
